FAERS Safety Report 6620483-6 (Version None)
Quarter: 2010Q1

REPORT INFORMATION
  Report Type: 
  Country: None (occurrence: None)
  Receive Date: 20100309
  Receipt Date: 20100226
  Transmission Date: 20100710
  Serious: No
  Sender: FDA-Public Use
  Company Number: CH-JNJFOC-20100205143

PATIENT
  Age: 56 Year

DRUGS (2)
  1. USTEKINUMAB [Suspect]
     Indication: PSORIASIS
     Route: 058
  2. ISOPTIN SR [Concomitant]

REACTIONS (1)
  - BALANCE DISORDER [None]
